FAERS Safety Report 8436771-7 (Version None)
Quarter: 2012Q2

REPORT INFORMATION
  Report Type: 
  Country: None (occurrence: None)
  Receive Date: 20120614
  Receipt Date: 20120605
  Transmission Date: 20120825
  Serious: Yes (Hospitalization)
  Sender: FDA-Public Use
  Company Number: US-ASTRAZENECA-2012SE37674

PATIENT
  Age: 70 Year
  Sex: Female

DRUGS (3)
  1. LOSARTAN POTASSIUM [Concomitant]
  2. OMEPRAZOLE [Suspect]
     Indication: GASTROOESOPHAGEAL SPHINCTER INSUFFICIENCY
     Route: 048
  3. FLUCONAZOLE [Concomitant]
     Indication: ORAL CANDIDIASIS

REACTIONS (3)
  - DEPRESSION [None]
  - HYPONATRAEMIA [None]
  - PSYCHOTIC DISORDER [None]
